FAERS Safety Report 8390407-2 (Version None)
Quarter: 2012Q2

REPORT INFORMATION
  Report Type: 
  Country: None (occurrence: None)
  Receive Date: 20120521
  Receipt Date: 20120504
  Transmission Date: 20120825
  Serious: Yes (Hospitalization)
  Sender: FDA-Public Use
  Company Number: DSA_53407_2012

PATIENT
  Age: 72 Year
  Sex: Male

DRUGS (8)
  1. PLAVIX [Concomitant]
  2. SIMVASTATIN [Concomitant]
  3. LEVOTHYROXINE SODIUM [Concomitant]
  4. LORAZEPAM [Concomitant]
  5. ENALAPRIL MALEATE [Suspect]
     Indication: HYPERTENSION
     Dosage: (5 MG QD ORAL)
     Route: 048
     Dates: end: 20111216
  6. NOCTRAN (NOCTRAN-ACEPROMAZINE MALEATE (+) ACEPROMETAZINE MALEATE (+) C [Suspect]
     Indication: PRODUCT USED FOR UNKNOWN INDICATION
     Dosage: (10 MG QD ORAL)
     Route: 048
     Dates: end: 20111216
  7. ASPIRIN [Concomitant]
  8. DILTIAZEM HCL [Concomitant]

REACTIONS (5)
  - DRUG INTERACTION [None]
  - ORTHOSTATIC HYPOTENSION [None]
  - FALL [None]
  - VENTRICULAR EXTRASYSTOLES [None]
  - ATRIAL FIBRILLATION [None]
